FAERS Safety Report 20013925 (Version 3)
Quarter: 2021Q4

REPORT INFORMATION
  Report Type: Spontaneous
  Country: JP (occurrence: JP)
  Receive Date: 20211029
  Receipt Date: 20211206
  Transmission Date: 20220303
  Serious: Yes (Other)
  Sender: FDA-Public Use
  Company Number: JP-MYLANLABS-2021M1075303

PATIENT
  Age: 2 Year
  Sex: Male

DRUGS (1)
  1. EPIPEN [Suspect]
     Active Substance: EPINEPHRINE
     Indication: Anaphylactoid reaction
     Route: 030

REACTIONS (3)
  - Injection site laceration [Unknown]
  - Device use issue [Unknown]
  - Injection site scar [Unknown]
